FAERS Safety Report 7067324-3 (Version None)
Quarter: 2010Q4

REPORT INFORMATION
  Report Type: 
  Country: None (occurrence: None)
  Receive Date: 20101022
  Receipt Date: 20101022
  Transmission Date: 20110411
  Serious: Yes (Disabling)
  Sender: FDA-Public Use
  Company Number: None

PATIENT
  Age: 63 Year
  Sex: Female

DRUGS (1)
  1. CARBAMAZEPINE N/A N/A [Suspect]
     Indication: POST-TRAUMATIC EPILEPSY

REACTIONS (6)
  - DRY MOUTH [None]
  - DRY THROAT [None]
  - INSOMNIA [None]
  - OROPHARYNGEAL PAIN [None]
  - THROAT TIGHTNESS [None]
  - TREMOR [None]
